FAERS Safety Report 18342546 (Version 1)
Quarter: 2020Q4

REPORT INFORMATION
  Report Type: Spontaneous
  Country: FR (occurrence: FR)
  Receive Date: 20201005
  Receipt Date: 20201005
  Transmission Date: 20210113
  Serious: Yes (Hospitalization)
  Sender: FDA-Public Use
  Company Number: FR-TEVA-2020-FR-1834800

PATIENT
  Age: 93 Year
  Sex: Male

DRUGS (1)
  1. LANSOPRAZOLE. [Suspect]
     Active Substance: LANSOPRAZOLE
     Dosage: 30 MG
     Route: 048

REACTIONS (3)
  - Hypokalaemia [Unknown]
  - Diarrhoea [Unknown]
  - Colitis microscopic [Unknown]

NARRATIVE: CASE EVENT DATE: 20200529
